FAERS Safety Report 5455339-8 (Version None)
Quarter: 2007Q3

REPORT INFORMATION
  Report Type: 
  Country: None (occurrence: None)
  Receive Date: 20070918
  Receipt Date: 20070906
  Transmission Date: 20080115
  Serious: No
  Sender: FDA-Public Use
  Company Number: US-JNJFOC-20070901933

PATIENT
  Sex: Female

DRUGS (7)
  1. INVEGA [Suspect]
     Route: 048
  2. INVEGA [Suspect]
     Indication: DRUG USE FOR UNKNOWN INDICATION
     Route: 048
  3. SEROQUEL [Concomitant]
  4. LUPRON [Concomitant]
  5. TRILEPTIL [Concomitant]
  6. KLONOPIN [Concomitant]
  7. VISTARIL [Concomitant]

REACTIONS (5)
  - DRY EYE [None]
  - LOSS OF LIBIDO [None]
  - PELVIC PAIN [None]
  - VAGINAL HAEMORRHAGE [None]
  - VULVOVAGINAL DRYNESS [None]
